FAERS Safety Report 11845479 (Version 1)
Quarter: 2015Q4

REPORT INFORMATION
  Report Type: Spontaneous
  Country: TR (occurrence: TR)
  Receive Date: 20151217
  Receipt Date: 20151217
  Transmission Date: 20160305
  Serious: No
  Sender: FDA-Public Use
  Company Number: TR-JNJFOC-20151206895

PATIENT
  Age: 4 Decade
  Sex: Male

DRUGS (1)
  1. STELARA [Suspect]
     Active Substance: USTEKINUMAB
     Indication: UNEVALUABLE EVENT
     Route: 058
     Dates: start: 20141208, end: 201509

REACTIONS (1)
  - Pustular psoriasis [Unknown]

NARRATIVE: CASE EVENT DATE: 201509
